FAERS Safety Report 18633520 (Version 1)
Quarter: 2020Q4

REPORT INFORMATION
  Report Type: Spontaneous
  Country: FR (occurrence: FR)
  Receive Date: 20201218
  Receipt Date: 20201218
  Transmission Date: 20210114
  Serious: Yes (Hospitalization)
  Sender: FDA-Public Use
  Company Number: FR-PFIZER INC-2020495218

PATIENT
  Age: 16 Year
  Sex: Female
  Weight: 53 kg

DRUGS (5)
  1. DOXORUBICIN HCL [Suspect]
     Active Substance: DOXORUBICIN HYDROCHLORIDE
     Indication: OSTEOSARCOMA
     Dosage: 37.5 MG/M2
     Route: 041
     Dates: start: 20200703, end: 20200724
  2. METHOTREXATE SODIUM. [Suspect]
     Active Substance: METHOTREXATE SODIUM
     Indication: OSTEOSARCOMA
     Dosage: 336.2 G
     Route: 041
     Dates: start: 20190314, end: 20191126
  3. CISPLATIN. [Suspect]
     Active Substance: CISPLATIN
     Indication: OSTEOSARCOMA METASTATIC
     Dosage: 120 MG/M2 (BY CURE)
     Route: 041
     Dates: start: 20200703, end: 20200724
  4. IFOSFAMIDE. [Suspect]
     Active Substance: IFOSFAMIDE
     Indication: OSTEOSARCOMA
     Dosage: 88.72 G
     Route: 041
     Dates: start: 20190405, end: 20191024
  5. ETOPOSIDE. [Suspect]
     Active Substance: ETOPOSIDE
     Indication: OSTEOSARCOMA
     Dosage: 1776 MG
     Route: 041
     Dates: start: 20190405, end: 20191024

REACTIONS (1)
  - Renal tubular disorder [Recovered/Resolved]
